FAERS Safety Report 22061077 (Version 5)
Quarter: 2023Q2

REPORT INFORMATION
  Report Type: Report from Study
  Country: MX (occurrence: MX)
  Receive Date: 20230303
  Receipt Date: 20230504
  Transmission Date: 20230721
  Serious: Yes (Life-Threatening)
  Sender: FDA-Public Use
  Company Number: MX-PFIZER INC-PV202300039900

PATIENT
  Age: 75 Year
  Sex: Male
  Weight: 49 kg

DRUGS (5)
  1. TALAZOPARIB [Suspect]
     Active Substance: TALAZOPARIB
     Indication: Prostate cancer
     Dosage: 0.5 MG, DAILY
     Route: 048
     Dates: start: 20230116
  2. ENZALUTAMIDE [Suspect]
     Active Substance: ENZALUTAMIDE
     Indication: Prostate cancer
     Dosage: 160 MG, DAILY
     Route: 048
     Dates: start: 20230116
  3. ZALDIAR [Concomitant]
     Active Substance: ACETAMINOPHEN\TRAMADOL HYDROCHLORIDE
     Indication: Bone pain
     Dosage: PARACETAMOL 325 MG AND TRAMADOL 37.5 MG, 2X/DAY
     Route: 048
     Dates: start: 202209
  4. NEBIVOLOL [Concomitant]
     Active Substance: NEBIVOLOL
     Indication: Hypertension
     Dosage: 2.5 MG, DAILY
     Route: 048
     Dates: start: 20220101
  5. ISOSORBIDE [Concomitant]
     Active Substance: ISOSORBIDE
     Indication: Hypertension
     Dosage: 20 MG, DAILY
     Route: 048
     Dates: start: 20220101

REACTIONS (1)
  - Platelet count decreased [Recovered/Resolved]

NARRATIVE: CASE EVENT DATE: 20230228
